FAERS Safety Report 5444655-1 (Version None)
Quarter: 2007Q3

REPORT INFORMATION
  Report Type: 
  Country: None (occurrence: None)
  Receive Date: 20070906
  Receipt Date: 20070227
  Transmission Date: 20080115
  Serious: No
  Sender: FDA-Public Use
  Company Number: A0636130A

PATIENT
  Age: 65 Year
  Sex: Male
  Weight: 75 kg

DRUGS (3)
  1. REQUIP [Suspect]
     Indication: RESTLESS LEGS SYNDROME
     Dosage: 2MG PER DAY
     Route: 048
     Dates: start: 20060901
  2. ACTONEL [Concomitant]
     Dosage: 35MG WEEKLY
     Route: 048
     Dates: start: 20050101
  3. ZANAFLEX [Concomitant]
     Dosage: 4MG THREE TIMES PER DAY
     Route: 048
     Dates: start: 20060101

REACTIONS (3)
  - BURNING SENSATION [None]
  - DYSKINESIA [None]
  - MUSCLE SPASMS [None]
